FAERS Safety Report 5493962-5 (Version None)
Quarter: 2007Q4

REPORT INFORMATION
  Report Type: 
  Country: None (occurrence: None)
  Receive Date: 20071023
  Receipt Date: 20071015
  Transmission Date: 20080405
  Serious: Yes (Other)
  Sender: FDA-Public Use
  Company Number: US-PFIZER INC-2007087156

PATIENT
  Sex: Female
  Weight: 115.7 kg

DRUGS (12)
  1. DETROL LA [Suspect]
     Indication: INCONTINENCE
  2. ACTOS [Concomitant]
     Indication: DIABETES MELLITUS
  3. METFORMIN [Concomitant]
     Indication: DIABETES MELLITUS
  4. METOPROLOL [Concomitant]
     Indication: DIABETES MELLITUS
  5. LISINOPRIL [Concomitant]
     Indication: HYPERTENSION
  6. SIMVASTATIN [Concomitant]
     Indication: BLOOD CHOLESTEROL INCREASED
  7. FOLIC ACID [Concomitant]
  8. ACETYLSALICYLIC ACID SRT [Concomitant]
  9. TRIAMTERENE AND HYDROCHLOROTHIAZIDE [Concomitant]
     Indication: INCONTINENCE
     Dosage: TEXT:75/50MG
  10. OMEGA 3 [Concomitant]
  11. ASCORBIC ACID [Concomitant]
  12. CYANOCOBALAMIN [Concomitant]

REACTIONS (1)
  - FLUID RETENTION [None]
